FAERS Safety Report 24629516 (Version 1)
Quarter: 2024Q4

REPORT INFORMATION
  Report Type: Spontaneous
  Country: IE (occurrence: IE)
  Receive Date: 20241118
  Receipt Date: 20241118
  Transmission Date: 20250115
  Serious: Yes (Death, Other)
  Sender: ASTELLAS
  Company Number: IE-ASTELLAS-2024-AER-019043

PATIENT

DRUGS (2)
  1. ISAVUCONAZONIUM SULFATE [Suspect]
     Active Substance: ISAVUCONAZONIUM SULFATE
     Indication: Aspergillus infection
     Route: 065
  2. ISAVUCONAZONIUM SULFATE [Suspect]
     Active Substance: ISAVUCONAZONIUM SULFATE
     Indication: Fungal infection

REACTIONS (2)
  - Neoplasm malignant [Fatal]
  - Off label use [Unknown]
